FAERS Safety Report 12525270 (Version 1)
Quarter: 2016Q3

REPORT INFORMATION
  Report Type: Spontaneous
  Country: JP (occurrence: JP)
  Receive Date: 20160704
  Receipt Date: 20160704
  Transmission Date: 20161109
  Serious: Yes (Other)
  Sender: FDA-Public Use
  Company Number: JP-PFIZER INC-2016318534

PATIENT

DRUGS (18)
  1. MOSAPRIDE CITRATE [Concomitant]
     Active Substance: MOSAPRIDE CITRATE
  2. HERBAL NOS [Concomitant]
     Active Substance: HERBALS
  3. PLAVIX [Concomitant]
     Active Substance: CLOPIDOGREL BISULFATE
  4. TELEMIN SOFT [Concomitant]
  5. BAYASPIRIN [Concomitant]
     Active Substance: ASPIRIN
  6. AMLODIN [Concomitant]
     Active Substance: AMLODIPINE BESYLATE
  7. SHIGMABITAN [Concomitant]
  8. MONILAC [Concomitant]
     Active Substance: LACTULOSE
  9. LYRICA [Suspect]
     Active Substance: PREGABALIN
     Dosage: 25 MG, 1X/DAY
     Route: 048
     Dates: start: 201301
  10. PLETAAL [Concomitant]
     Active Substance: CILOSTAZOL
  11. LANSOPRAZOLE. [Concomitant]
     Active Substance: LANSOPRAZOLE
  12. CELECOX [Concomitant]
     Active Substance: CELECOXIB
  13. CALTAN [Concomitant]
     Active Substance: CALCIUM CARBONATE
  14. CARBOCISTEINE [Concomitant]
     Active Substance: CARBOCYSTEINE
  15. ALOSENN [Concomitant]
     Active Substance: SENNA LEAF
  16. GRAMALIL [Concomitant]
     Active Substance: TIAPRIDE HYDROCHLORIDE
  17. LIMAPROST ALFADEX [Concomitant]
     Active Substance: LIMAPROST
  18. ASTOMIN [Concomitant]
     Active Substance: DIMEMORFAN

REACTIONS (3)
  - Delirium [Unknown]
  - Somnolence [Unknown]
  - Dementia [Unknown]
